FAERS Safety Report 6492798-6 (Version None)
Quarter: 2009Q4

REPORT INFORMATION
  Report Type: 
  Country: None (occurrence: None)
  Receive Date: 20091209
  Receipt Date: 20091122
  Transmission Date: 20100525
  Serious: Yes (Hospitalization)
  Sender: FDA-Public Use
  Company Number: CIO09020743

PATIENT
  Age: 82 Year
  Sex: Male
  Weight: 108.8 kg

DRUGS (4)
  1. METAMUCIL-2 [Suspect]
     Dosage: 3/DAY FOR 1 DAY, ORAL
     Route: 048
     Dates: start: 20091120, end: 20091120
  2. ALTACE [Concomitant]
  3. ASPIRIN [Concomitant]
  4. EXFORGE [Concomitant]

REACTIONS (4)
  - ABDOMINAL DISCOMFORT [None]
  - ABDOMINAL DISTENSION [None]
  - ABDOMINAL PAIN UPPER [None]
  - CHOLECYSTITIS [None]
